FAERS Safety Report 20505183 (Version 1)
Quarter: 2022Q1

REPORT INFORMATION
  Report Type: Spontaneous
  Country: FR (occurrence: FR)
  Receive Date: 20220223
  Receipt Date: 20220223
  Transmission Date: 20220424
  Serious: Yes (Other)
  Sender: FDA-Public Use
  Company Number: FR-AFSSAPS-AVBX20220055

PATIENT
  Age: 36 Year
  Sex: Female

DRUGS (2)
  1. QUETIAPINE [Suspect]
     Active Substance: QUETIAPINE
     Indication: Drug abuse
     Dosage: UNK
     Route: 048
     Dates: start: 20210129
  2. VALIUM [Suspect]
     Active Substance: DIAZEPAM
     Indication: Drug abuse
     Dosage: UNK
     Route: 048
     Dates: start: 20210129

REACTIONS (1)
  - Drug abuse [Recovered/Resolved]

NARRATIVE: CASE EVENT DATE: 20210129
